FAERS Safety Report 23660263 (Version 1)
Quarter: 2024Q1

REPORT INFORMATION
  Report Type: Spontaneous
  Country: FR (occurrence: FR)
  Receive Date: 20240321
  Receipt Date: 20240321
  Transmission Date: 20240410
  Serious: Yes (Hospitalization)
  Sender: FDA-Public Use
  Company Number: FR-JNJFOC-20240353060

PATIENT
  Sex: Male

DRUGS (3)
  1. HALOPERIDOL DECANOATE [Suspect]
     Active Substance: HALOPERIDOL DECANOATE
     Indication: Schizophrenia
     Route: 030
     Dates: start: 20231226, end: 20231226
  2. LOXAPINE [Suspect]
     Active Substance: LOXAPINE
     Indication: Schizophrenia
     Route: 048
     Dates: start: 20231201, end: 20240101
  3. VALPROATE SODIUM [Suspect]
     Active Substance: VALPROATE SODIUM
     Indication: Schizophrenia
     Route: 048
     Dates: start: 20231201, end: 20240102

REACTIONS (3)
  - Hepatic cytolysis [Recovered/Resolved]
  - General physical health deterioration [Recovered/Resolved]
  - Bilirubin conjugated increased [Recovered/Resolved]

NARRATIVE: CASE EVENT DATE: 20231228
